FAERS Safety Report 10289446 (Version 2)
Quarter: 2014Q3

REPORT INFORMATION
  Report Type: Not Available
  Country: DE (occurrence: DE)
  Receive Date: 20140710
  Receipt Date: 20140710
  Transmission Date: 20150326
  Serious: No
  Sender: FDA-Public Use
  Company Number: DE-LUPIN PHARMACEUTICALS INC.-2014-00562

PATIENT
  Age: 42 Year
  Sex: Male

DRUGS (2)
  1. LAMOTRIGIN-HORMOSAN [Suspect]
     Active Substance: LAMOTRIGINE
     Indication: SCHIZOAFFECTIVE DISORDER
     Route: 065
     Dates: start: 20140129
  2. SEROQUEL 600 MG RETARD [Concomitant]
     Indication: PRODUCT USED FOR UNKNOWN INDICATION
     Route: 065

REACTIONS (1)
  - Eczema asteatotic [Not Recovered/Not Resolved]

NARRATIVE: CASE EVENT DATE: 20140214
